FAERS Safety Report 7844507-3 (Version None)
Quarter: 2011Q4

REPORT INFORMATION
  Report Type: 
  Country: None (occurrence: None)
  Receive Date: 20111025
  Receipt Date: 20111011
  Transmission Date: 20120403
  Serious: Yes (Hospitalization, Other)
  Sender: FDA-Public Use
  Company Number: US-BAYER-2011-009805

PATIENT
  Age: 25 Year
  Sex: Female

DRUGS (6)
  1. YASMIN [Suspect]
     Indication: ACNE
  2. YASMIN [Suspect]
     Indication: CONTRACEPTION
     Dosage: UNK
     Dates: start: 20030101, end: 20080101
  3. WELLBUTRIN [Concomitant]
     Dosage: 100 MG, BID
     Route: 048
  4. CHOLESTYRAMINE [Concomitant]
     Dosage: 4 MG, BID
     Route: 048
  5. PAXIL [Concomitant]
     Dosage: 5 MG, QD
     Route: 048
  6. PREVACID [Concomitant]
     Dosage: UNK UNK, QD
     Route: 048

REACTIONS (5)
  - BILIARY DYSKINESIA [None]
  - CHOLELITHIASIS [None]
  - INJURY [None]
  - PAIN [None]
  - CHOLECYSTITIS CHRONIC [None]
